FAERS Safety Report 9916599 (Version 2)
Quarter: 2014Q1

REPORT INFORMATION
  Report Type: Spontaneous
  Country: SI (occurrence: SI)
  Receive Date: 20140221
  Receipt Date: 20140221
  Transmission Date: 20141002
  Serious: Yes (Death, Other)
  Sender: FDA-Public Use
  Company Number: PHHY2014SI017264

PATIENT
  Age: 43 Year
  Sex: Male

DRUGS (10)
  1. PACLITAXEL [Suspect]
     Indication: MALIGNANT MELANOMA
     Dosage: 175 MG/M2, UNK
     Dates: start: 201007, end: 201009
  2. PACLITAXEL [Suspect]
     Indication: METASTATIC NEOPLASM
  3. CARBOPLATIN [Suspect]
     Indication: MALIGNANT MELANOMA
     Dates: start: 201007, end: 201009
  4. CARBOPLATIN [Suspect]
     Indication: METASTATIC NEOPLASM
  5. TEMOZOLOMIDE [Suspect]
     Indication: METASTATIC MALIGNANT MELANOMA
     Dosage: 100 MG/M2, UNK
  6. TEMOZOLOMIDE [Suspect]
     Indication: METASTATIC NEOPLASM
  7. IPILIMUMAB [Suspect]
     Indication: MALIGNANT MELANOMA
     Dosage: 3 MG/KG, EVERY 3 WEEKS
     Dates: start: 201102
  8. IPILIMUMAB [Suspect]
     Indication: METASTATIC NEOPLASM
  9. VEMURAFENIB [Suspect]
     Indication: MALIGNANT MELANOMA
     Dosage: 960 MG, Q12H
     Dates: start: 201107
  10. VEMURAFENIB [Suspect]
     Indication: METASTATIC NEOPLASM

REACTIONS (15)
  - Malignant neoplasm progression [Fatal]
  - Malignant melanoma [Fatal]
  - Lymphadenopathy [Fatal]
  - Lymphadenopathy mediastinal [Fatal]
  - Metastases to liver [Fatal]
  - Metastases to lung [Fatal]
  - Metastases to central nervous system [Fatal]
  - Metastases to spine [Fatal]
  - Spinal column stenosis [Unknown]
  - Paraparesis [Unknown]
  - Mental impairment [Unknown]
  - Drug ineffective [Unknown]
  - Nausea [Unknown]
  - Abdominal pain [Unknown]
  - Fatigue [Unknown]
